FAERS Safety Report 12538231 (Version 1)
Quarter: 2016Q3

REPORT INFORMATION
  Report Type: Spontaneous
  Country: None (occurrence: GB)
  Receive Date: 20160707
  Receipt Date: 20160707
  Transmission Date: 20161109
  Serious: Yes (Hospitalization)
  Sender: FDA-Public Use
  Company Number: GB-MEDAC PHARMA, INC.-1054791

PATIENT
  Age: 54 Year
  Sex: Female

DRUGS (3)
  1. METHOTREXATE SODIUM. [Suspect]
     Active Substance: METHOTREXATE SODIUM
     Indication: PAIN
  2. ENBREL [Suspect]
     Active Substance: ETANERCEPT
     Route: 058
     Dates: start: 20160104
  3. FOLIC ACID. [Concomitant]
     Active Substance: FOLIC ACID

REACTIONS (17)
  - Pain in extremity [Unknown]
  - Mobility decreased [Unknown]
  - Erythema [Unknown]
  - Grip strength decreased [Unknown]
  - Arthralgia [Unknown]
  - Joint swelling [Unknown]
  - Blood pressure increased [Unknown]
  - Depressed mood [Unknown]
  - Peripheral swelling [Unknown]
  - Drug effect delayed [Unknown]
  - Paronychia [Unknown]
  - Gait disturbance [Recovering/Resolving]
  - Weight bearing difficulty [Recovering/Resolving]
  - Localised infection [Unknown]
  - Condition aggravated [Unknown]
  - Frustration tolerance decreased [Unknown]
  - Injection site bruising [Unknown]

NARRATIVE: CASE EVENT DATE: 2016
